FAERS Safety Report 24667693 (Version 3)
Quarter: 2025Q3

REPORT INFORMATION
  Report Type: Spontaneous
  Country: JP (occurrence: JP)
  Receive Date: 20241126
  Receipt Date: 20250905
  Transmission Date: 20251021
  Serious: Yes (Hospitalization)
  Sender: AMGEN
  Company Number: JP-AMGEN-JPNSP2024232863

PATIENT
  Age: 74 Year
  Sex: Male

DRUGS (6)
  1. EVENITY [Suspect]
     Active Substance: ROMOSOZUMAB-AQQG
     Indication: Osteoporosis
     Route: 058
     Dates: start: 20210907, end: 20220405
  2. Adetphos kowa [Concomitant]
  3. METHYLCOBALAMIN [Concomitant]
     Active Substance: METHYLCOBALAMIN
  4. HYALURONIC ACID [Concomitant]
     Active Substance: HYALURONIC ACID
  5. NEUROTROPIN [Concomitant]
     Active Substance: NEUROTROPIN
  6. MIROGABALIN BESYLATE [Concomitant]
     Active Substance: MIROGABALIN BESYLATE

REACTIONS (1)
  - Hospitalisation [Unknown]

NARRATIVE: CASE EVENT DATE: 20220405
